FAERS Safety Report 6702850-5 (Version None)
Quarter: 2010Q2

REPORT INFORMATION
  Report Type: 
  Country: None (occurrence: None)
  Receive Date: 20100429
  Receipt Date: 20100429
  Transmission Date: 20101027
  Serious: No
  Sender: FDA-Public Use
  Company Number: None

PATIENT
  Age: 53 Year
  Sex: Male
  Weight: 81.6475 kg

DRUGS (1)
  1. VYTORIN [Suspect]
     Indication: BLOOD CHOLESTEROL INCREASED
     Dosage: ONE TABLET DAILY AT BEDTIME PO
     Route: 048
     Dates: start: 20100301, end: 20100422

REACTIONS (4)
  - ABDOMINAL DISTENSION [None]
  - ABDOMINAL PAIN UPPER [None]
  - HEADACHE [None]
  - VOMITING [None]
